FAERS Safety Report 4860831-0 (Version None)
Quarter: 2005Q4

REPORT INFORMATION
  Report Type: 
  Country: None (occurrence: None)
  Receive Date: 20051220
  Receipt Date: 20030606
  Transmission Date: 20060501
  Serious: Yes (Hospitalization, Other)
  Sender: FDA-Public Use
  Company Number: 200315791GDDC

PATIENT
  Age: 74 Year
  Sex: Male
  Weight: 82.4 kg

DRUGS (37)
  1. CODE UNBROKEN [Suspect]
     Indication: MYOCARDIAL INFARCTION
     Dosage: DOSE: ENOX/PLACEBO BOLUS 30 MG
     Route: 040
     Dates: start: 20030530, end: 20030530
  2. CODE UNBROKEN [Suspect]
     Dosage: DOSE: HEP/PLACEBO BOLUS 4000 UNITS
     Route: 040
     Dates: start: 20030530, end: 20030530
  3. CODE UNBROKEN [Suspect]
     Dosage: DOSE: ENOX/PLACEBO SC 82 MG
     Route: 058
     Dates: start: 20030530, end: 20030604
  4. CODE UNBROKEN [Suspect]
     Dosage: DOSE: HEP/PLACEBO IV 20 ML/HR; FREQUENCY: CONTINUOUS
     Route: 041
     Dates: start: 20030530, end: 20030605
  5. ASPIRIN [Suspect]
     Indication: MYOCARDIAL INFARCTION
     Route: 048
     Dates: start: 20030530
  6. TENECTEPLASE [Suspect]
     Indication: MYOCARDIAL INFARCTION
     Route: 042
     Dates: start: 20030530, end: 20030530
  7. PANTOPRAZOLE [Concomitant]
     Route: 048
     Dates: end: 20030530
  8. ASPIRIN [Concomitant]
     Route: 048
     Dates: end: 20030531
  9. ASPIRIN [Concomitant]
     Route: 048
     Dates: start: 20030530, end: 20030530
  10. ASPIRIN [Concomitant]
     Route: 048
     Dates: start: 20030601
  11. METOPROLOL [Concomitant]
     Route: 048
     Dates: end: 20030531
  12. METOPROLOL [Concomitant]
     Route: 042
     Dates: start: 20030530, end: 20030530
  13. PRAVASTATIN [Concomitant]
     Route: 048
     Dates: end: 20030530
  14. ANGININE [Concomitant]
     Route: 060
     Dates: start: 20030530
  15. MORPHINE [Concomitant]
     Route: 042
     Dates: start: 20030530, end: 20030530
  16. MORPHINE [Concomitant]
     Route: 042
     Dates: start: 20030601, end: 20030601
  17. MAXOLON [Concomitant]
     Route: 042
     Dates: start: 20030530, end: 20030531
  18. GTN-S [Concomitant]
     Route: 061
     Dates: start: 20030530, end: 20030602
  19. GTN-S [Concomitant]
     Dosage: DOSE: 5 UG/HR
     Route: 042
     Dates: start: 20030601, end: 20030601
  20. LASIX [Concomitant]
     Route: 042
     Dates: start: 20030531, end: 20030531
  21. LASIX [Concomitant]
     Route: 042
     Dates: start: 20030601, end: 20030602
  22. LASIX [Concomitant]
     Route: 048
     Dates: start: 20030603, end: 20030605
  23. LASIX [Concomitant]
     Route: 048
     Dates: start: 20030606
  24. ONDANSETRON [Concomitant]
     Route: 042
     Dates: start: 20030531, end: 20030531
  25. DIGOXIN [Concomitant]
     Route: 042
     Dates: start: 20030601, end: 20030602
  26. DIGOXIN [Concomitant]
     Route: 048
     Dates: start: 20030603, end: 20030603
  27. DIGOXIN [Concomitant]
     Route: 048
     Dates: start: 20030604
  28. INDOCIN [Concomitant]
     Route: 048
     Dates: start: 20030604, end: 20030606
  29. SPAN-K [Concomitant]
     Route: 048
     Dates: start: 20030601, end: 20030602
  30. CHLORVESCENT [Concomitant]
     Route: 048
     Dates: start: 20030601, end: 20030602
  31. PERINDOPRIL [Concomitant]
     Route: 048
     Dates: start: 20030601, end: 20030606
  32. NYSTATIN [Concomitant]
     Route: 048
     Dates: start: 20030602
  33. AMIODARONE HCL [Concomitant]
     Route: 048
     Dates: start: 20030603, end: 20030604
  34. COLCHICINE [Concomitant]
     Route: 048
     Dates: start: 20030604
  35. ACETAMINOPHEN W/ CODEINE [Concomitant]
     Route: 048
     Dates: start: 20030603
  36. DOPAMINE [Concomitant]
     Dosage: DOSE UNIT: MILLIGRAM PER (KILOGRAM*MINUTE)
     Route: 042
     Dates: start: 20030530, end: 20030601
  37. DOBUTAMINE [Concomitant]
     Dosage: DOSE UNIT: MILLIGRAM PER (KILOGRAM*MINUTE)
     Route: 042
     Dates: start: 20030602, end: 20030603

REACTIONS (12)
  - BLOOD CREATININE INCREASED [None]
  - BLOOD PRESSURE SYSTOLIC DECREASED [None]
  - CARDIAC FAILURE CONGESTIVE [None]
  - CARDIOGENIC SHOCK [None]
  - CEREBRAL INFARCTION [None]
  - CONFUSIONAL STATE [None]
  - HAEMORRHAGIC CEREBRAL INFARCTION [None]
  - MYOCARDIAL INFARCTION [None]
  - RENAL FAILURE ACUTE [None]
  - URINE OUTPUT DECREASED [None]
  - VISION BLURRED [None]
  - VISUAL ACUITY REDUCED [None]
